FAERS Safety Report 7780990-X (Version None)
Quarter: 2011Q3

REPORT INFORMATION
  Report Type: 
  Country: None (occurrence: None)
  Receive Date: 20110927
  Receipt Date: 20110920
  Transmission Date: 20111222
  Serious: Yes (Life-Threatening, Disabling, Other)
  Sender: FDA-Public Use
  Company Number: PHEH2011US03415

PATIENT
  Sex: Male

DRUGS (18)
  1. FLECAINIDE ACETATE [Concomitant]
     Dosage: 1 DF, BID
     Route: 048
  2. GABAPENTIN [Concomitant]
     Indication: RESTLESS LEGS SYNDROME
     Dosage: 1 DF, BID
     Route: 048
  3. BACLOFEN [Concomitant]
     Dosage: HALF TABLETS THREE TIMES A DAY
     Route: 048
  4. NORCO [Concomitant]
     Dosage: 1 DF, PRN
     Route: 048
  5. FERROUS GLUCONATE [Concomitant]
     Dosage: 300 MG, BID
     Route: 048
  6. WARFARIN SODIUM [Concomitant]
     Dosage: 1 AND HALF TABLET ONCE A DAY
     Route: 048
  7. FUROSEMIDE [Concomitant]
     Dosage: 1 DF, PRN
     Route: 048
  8. TEMAZEPAM [Concomitant]
     Dosage: 1 DF, QH
     Route: 048
  9. HYDROCODONE [Concomitant]
     Dosage: UNK UKN, UNK
  10. BUPROPION [Concomitant]
     Dosage: 1 DF, BID
     Route: 048
  11. MELATONIN [Concomitant]
     Dosage: 1 DF, QD
     Route: 048
  12. VITAMIN B-12 [Concomitant]
     Dosage: UNK UKN, UNK
  13. VITAMIN D [Concomitant]
     Dosage: 50000 IU, QW
  14. FOLIC ACID [Concomitant]
     Dosage: 1 DF, QD
     Route: 048
  15. COUMADIN [Concomitant]
     Dosage: 7.5 MG, UNK
  16. BENADRYL [Concomitant]
     Dosage: 12.5 MG / 5 ML LIQUID 10 ML PRN
  17. EXELON [Suspect]
     Indication: VASCULAR DEMENTIA
     Dosage: 9.5 MG/24 HOURS
     Route: 062
  18. MIDODRINE HYDROCHLORIDE [Concomitant]
     Dosage: 2 DF, BID
     Route: 048

REACTIONS (18)
  - MEMORY IMPAIRMENT [None]
  - FAECAL INCONTINENCE [None]
  - FALL [None]
  - PAIN [None]
  - ABASIA [None]
  - VASCULAR DEMENTIA [None]
  - NERVE STIMULATION TEST ABNORMAL [None]
  - DIZZINESS [None]
  - FEELING ABNORMAL [None]
  - DEPRESSION [None]
  - ASTHENIA [None]
  - DRUG INEFFECTIVE [None]
  - DYSPHEMIA [None]
  - CONFUSIONAL STATE [None]
  - NAUSEA [None]
  - BACK PAIN [None]
  - GAIT DISTURBANCE [None]
  - DIARRHOEA [None]
